FAERS Safety Report 9581499 (Version 1)
Quarter: 2013Q4

REPORT INFORMATION
  Report Type: Report from Study
  Country: AR (occurrence: AR)
  Receive Date: 20131002
  Receipt Date: 20131002
  Transmission Date: 20140711
  Serious: Yes (Other)
  Sender: FDA-Public Use
  Company Number: PHHY2013AR109611

PATIENT
  Sex: Female

DRUGS (5)
  1. EXFORGE D [Suspect]
     Dosage: 160/12.5/5 MG, UNK
  2. DIOVAN D [Suspect]
     Indication: HYPERTENSION
     Dosage: 1 DF (160/12.5 MG), QD (DAILY, IN THE MORNING)
     Route: 048
  3. DIOVAN [Suspect]
     Indication: HYPERTENSION
     Dosage: 160 MG, QD (DAILY, AT NIGHT)
     Route: 048
  4. DICLOFENAC [Concomitant]
     Indication: OSTEOARTHRITIS
     Dosage: 75 MG, DAILY (IN THE MORNING)
     Route: 048
  5. DICLOFENAC [Concomitant]
     Dosage: 50 MG, DAILY (IN THE AFTERNOON)
     Route: 048

REACTIONS (4)
  - Nerve compression [Recovering/Resolving]
  - Musculoskeletal pain [Recovering/Resolving]
  - Pain in extremity [Recovering/Resolving]
  - Blood pressure systolic increased [Unknown]
